FAERS Safety Report 8389738-1 (Version None)
Quarter: 2012Q2

REPORT INFORMATION
  Report Type: 
  Country: None (occurrence: None)
  Receive Date: 20120524
  Receipt Date: 20120524
  Transmission Date: 20120825
  Serious: Yes (Disabling)
  Sender: FDA-Public Use
  Company Number: None

PATIENT
  Age: 48 Year
  Sex: Female
  Weight: 93.441 kg

DRUGS (2)
  1. GAS-X [Suspect]
     Indication: FLATULENCE
     Dosage: 1 TABLET DAILY
     Dates: start: 20090101, end: 20120101
  2. GAS-X [Suspect]
     Indication: ABDOMINAL DISTENSION
     Dosage: 1 TABLET DAILY
     Dates: start: 20090101, end: 20120101

REACTIONS (2)
  - DRUG HYPERSENSITIVITY [None]
  - SKIN DISCOLOURATION [None]
